FAERS Safety Report 5512576-1 (Version None)
Quarter: 2007Q4

REPORT INFORMATION
  Report Type: 
  Country: None (occurrence: None)
  Receive Date: 20071107
  Receipt Date: 20071023
  Transmission Date: 20080405
  Serious: Yes (Hospitalization)
  Sender: FDA-Public Use
  Company Number: 2007S1010636

PATIENT
  Age: 31 Year
  Sex: Female

DRUGS (2)
  1. VERAPAMIL HYDROCHLORIDE [Suspect]
  2. METOPROLOL TARTRATE [Suspect]

REACTIONS (10)
  - BLOOD PRESSURE DECREASED [None]
  - DEPRESSED LEVEL OF CONSCIOUSNESS [None]
  - DRUG TOXICITY [None]
  - INCORRECT DOSE ADMINISTERED [None]
  - LEFT VENTRICULAR FAILURE [None]
  - OLIGURIA [None]
  - PNEUMONIA [None]
  - PULMONARY VASCULAR DISORDER [None]
  - RESPIRATORY FAILURE [None]
  - SUICIDE ATTEMPT [None]
